FAERS Safety Report 5109762-1 (Version None)
Quarter: 2006Q3

REPORT INFORMATION
  Report Type: 
  Country: None (occurrence: None)
  Receive Date: 20060914
  Receipt Date: 20060901
  Transmission Date: 20061208
  Serious: Yes (Other)
  Sender: FDA-Public Use
  Company Number: 2006-BP-10377RO

PATIENT
  Age: 23 Year
  Sex: Female

DRUGS (4)
  1. FLUCONAZOLE [Suspect]
     Dosage: 400 MG/D, IV
     Route: 042
     Dates: start: 20020730
  2. ARSENIC TRIOXIDE (ARSENIC TRIOXIDE) [Suspect]
     Indication: ACUTE PROMYELOCYTIC LEUKAEMIA
     Dosage: (0.15 MG/KG)
     Dates: start: 20020715, end: 20020810
  3. CYTARABINE [Suspect]
     Indication: ACUTE PROMYELOCYTIC LEUKAEMIA
     Dosage: (100 MG/M2)
     Dates: start: 20020716
  4. CEPHALOSPORIN (CEPHALOSPORINS AND RELATED SUBSTANCES) [Suspect]
     Indication: PYREXIA
     Dates: start: 20020714

REACTIONS (5)
  - DYSPNOEA [None]
  - ELECTROCARDIOGRAM T WAVE INVERSION [None]
  - EXTRASYSTOLES [None]
  - PYREXIA [None]
  - TORSADE DE POINTES [None]
